FAERS Safety Report 23040771 (Version 2)
Quarter: 2023Q4

REPORT INFORMATION
  Report Type: Spontaneous
  Country: JP (occurrence: JP)
  Receive Date: 20231006
  Receipt Date: 20231102
  Transmission Date: 20240110
  Serious: Yes (Hospitalization, Other)
  Sender: FDA-Public Use
  Company Number: JP-GLAXOSMITHKLINE-JP2023JPN135312

PATIENT

DRUGS (2)
  1. VALTREX [Suspect]
     Active Substance: VALACYCLOVIR HYDROCHLORIDE
     Indication: Herpes zoster
     Dosage: 2000 MG, QD
  2. LOXOPROFEN SODIUM [Suspect]
     Active Substance: LOXOPROFEN SODIUM
     Indication: Herpes zoster
     Dosage: UNK

REACTIONS (10)
  - Toxic encephalopathy [Unknown]
  - Vomiting [Unknown]
  - Pneumonia aspiration [Unknown]
  - Cardiac failure [Unknown]
  - Pulmonary oedema [Unknown]
  - Altered state of consciousness [Recovering/Resolving]
  - Toxicity to various agents [Unknown]
  - Dysarthria [Unknown]
  - Gait disturbance [Unknown]
  - Haemodynamic instability [Unknown]
